FAERS Safety Report 6060599-9 (Version None)
Quarter: 2009Q1

REPORT INFORMATION
  Report Type: 
  Country: None (occurrence: None)
  Receive Date: 20090202
  Receipt Date: 20090128
  Transmission Date: 20090719
  Serious: Yes (Hospitalization)
  Sender: FDA-Public Use
  Company Number: JP-BRISTOL-MYERS SQUIBB COMPANY-14374995

PATIENT
  Age: 77 Year
  Sex: Male

DRUGS (8)
  1. PARAPLATIN [Suspect]
     Indication: THYMOMA MALIGNANT
     Dosage: GIVEN FOR TOTALLY 4 CYCLES STARTED 11DEC07
     Route: 041
     Dates: start: 20080303, end: 20080303
  2. LASTET [Suspect]
     Indication: THYMOMA MALIGNANT
     Dosage: GIVEN FOR TOTALLY 4 CYCLES STARTED 11DEC07
     Route: 041
     Dates: start: 20080305, end: 20080305
  3. MESTINON [Concomitant]
     Route: 048
     Dates: start: 19790101
  4. NU-LOTAN [Concomitant]
     Route: 048
     Dates: start: 19960101
  5. ACTOS [Concomitant]
     Route: 048
     Dates: start: 19900101
  6. ACTOS [Concomitant]
     Route: 048
     Dates: start: 19900101
  7. BASEN [Concomitant]
     Route: 048
  8. AMARYL [Concomitant]
     Route: 048
     Dates: start: 19900101

REACTIONS (2)
  - APLASIA PURE RED CELL [None]
  - BONE MARROW FAILURE [None]
